FAERS Safety Report 22615283 (Version 2)
Quarter: 2023Q2

REPORT INFORMATION
  Report Type: Other
  Country: CN (occurrence: None)
  Receive Date: 20230619
  Receipt Date: 20230622
  Transmission Date: 20230722
  Serious: Yes (Other)
  Sender: FDA-Public Use
  Company Number: CN-ROCHE-2791778

PATIENT

DRUGS (1)
  1. TOCILIZUMAB [Suspect]
     Active Substance: TOCILIZUMAB
     Indication: COVID-19 pneumonia
     Dosage: DILUTED IN 100 ML OF 0.9% SALINE AND ADMINISTERED FOR MORE THAN 1 H.
     Route: 041

REACTIONS (1)
  - Neutropenia [Recovered/Resolved]
